FAERS Safety Report 8183508 (Version 4)
Quarter: 2013Q1

REPORT INFORMATION
  Report Type: Report from Study
  Country: BR (occurrence: BR)
  Receive Date: 20111017
  Receipt Date: 20130314
  Transmission Date: 20140127
  Serious: Yes (Other)
  Sender: FDA-Public Use
  Company Number: BR-ROCHE-1001873

PATIENT
  Sex: Female
  Weight: 54 kg

DRUGS (3)
  1. MABTHERA [Suspect]
     Indication: RHEUMATOID ARTHRITIS
     Route: 042
     Dates: start: 201005
  2. MABTHERA [Suspect]
     Route: 042
     Dates: start: 201012
  3. MABTHERA [Suspect]
     Route: 042
     Dates: start: 201110

REACTIONS (5)
  - Spinal osteoarthritis [Not Recovered/Not Resolved]
  - Osteoarthritis [Not Recovered/Not Resolved]
  - Tooth disorder [Recovered/Resolved]
  - Therapeutic response decreased [Unknown]
  - Hepatic enzyme abnormal [Not Recovered/Not Resolved]
